FAERS Safety Report 7108262-7 (Version None)
Quarter: 2010Q4

REPORT INFORMATION
  Report Type: 
  Country: None (occurrence: None)
  Receive Date: 20101103
  Receipt Date: 20101027
  Transmission Date: 20110411
  Serious: Yes (Hospitalization)
  Sender: FDA-Public Use
  Company Number: 2010SP056278

PATIENT
  Age: 69 Year
  Sex: Male
  Weight: 58 kg

DRUGS (5)
  1. PEG-INTRON [Suspect]
     Indication: HEPATITIS C
     Dosage: (100 MCG; QW; SC) (80 MCG; QW; SC)
     Route: 058
     Dates: start: 20100407, end: 20100721
  2. PEG-INTRON [Suspect]
     Indication: HEPATITIS C
     Dosage: (100 MCG; QW; SC) (80 MCG; QW; SC)
     Route: 058
     Dates: start: 20100804, end: 20100915
  3. REBETOL [Suspect]
     Indication: HEPATITIS C
     Dosage: (800 MCG; QD; PO) (400 MCG; QD; PO) (400 MCG; QD; PO)
     Route: 048
     Dates: start: 20100407, end: 20100720
  4. REBETOL [Suspect]
     Indication: HEPATITIS C
     Dosage: (800 MCG; QD; PO) (400 MCG; QD; PO) (400 MCG; QD; PO)
     Route: 048
     Dates: start: 20100721, end: 20100728
  5. REBETOL [Suspect]
     Indication: HEPATITIS C
     Dosage: (800 MCG; QD; PO) (400 MCG; QD; PO) (400 MCG; QD; PO)
     Route: 048
     Dates: start: 20100811, end: 20100915

REACTIONS (8)
  - ABNORMAL BEHAVIOUR [None]
  - ANAEMIA [None]
  - DECREASED APPETITE [None]
  - DIARRHOEA [None]
  - GLOSSITIS [None]
  - PLATELET COUNT DECREASED [None]
  - PYREXIA [None]
  - SUBARACHNOID HAEMORRHAGE [None]
